FAERS Safety Report 9717016 (Version 1)
Quarter: 2013Q4

REPORT INFORMATION
  Report Type: Report from Study
  Country: CA (occurrence: CA)
  Receive Date: 20131127
  Receipt Date: 20131127
  Transmission Date: 20140711
  Serious: Yes (Hospitalization)
  Sender: FDA-Public Use
  Company Number: CA-JNJFOC-20131114303

PATIENT
  Age: 56 Year
  Sex: Female
  Weight: 53 kg

DRUGS (2)
  1. REMICADE [Suspect]
     Indication: CROHN^S DISEASE
     Route: 042
  2. PREDNISONE [Concomitant]
     Dosage: 40 MG TAPERING OFF
     Route: 048

REACTIONS (2)
  - Diarrhoea infectious [Recovered/Resolved]
  - Food poisoning [Recovered/Resolved]
